FAERS Safety Report 10252619 (Version 1)
Quarter: 2014Q2

REPORT INFORMATION
  Report Type: Spontaneous
  Country: US (occurrence: None)
  Receive Date: 20140620
  Receipt Date: 20140620
  Transmission Date: 20141212
  Serious: Yes (Other)
  Sender: FDA-Public Use
  Company Number: None

PATIENT
  Age: 73 Year
  Sex: Female
  Weight: 80.9 kg

DRUGS (18)
  1. LOVENOX [Suspect]
     Indication: THROMBOSIS PROPHYLAXIS
     Route: 058
     Dates: start: 20140615, end: 20140619
  2. ACETAMINOPHEN [Concomitant]
  3. ALLOPURINOL [Concomitant]
  4. ASPIRIN [Concomitant]
  5. CARVEDILOL [Concomitant]
  6. DOCUSATE [Concomitant]
  7. FLUTICASONE/SALMETEROL [Concomitant]
  8. GABAPENTIN [Concomitant]
  9. HYDROMORPHONE [Concomitant]
  10. HYDROMORPHONE IV [Concomitant]
  11. ISOSORBIDE MONONITRITE [Concomitant]
  12. OMEPRAZOLE [Concomitant]
  13. ONDASETRON HCL [Concomitant]
  14. OXYCODONE [Concomitant]
  15. PIPERACILLIN/TAZOBACTAM [Concomitant]
  16. POTASSIUM CHLORIDE ER [Concomitant]
  17. THEOPHYLLINE ER [Concomitant]
  18. ZOLPIDEM [Concomitant]

REACTIONS (2)
  - Injury associated with device [None]
  - Syringe issue [None]
